FAERS Safety Report 5677215-8 (Version None)
Quarter: 2008Q1

REPORT INFORMATION
  Report Type: 
  Country: None (occurrence: None)
  Receive Date: 20080321
  Receipt Date: 20080321
  Transmission Date: 20080703
  Serious: Yes (Other)
  Sender: FDA-Public Use
  Company Number: None

PATIENT
  Age: 37 Year
  Sex: Female
  Weight: 58.9676 kg

DRUGS (1)
  1. CHANTIX [Suspect]
     Indication: SMOKING CESSATION THERAPY
     Dosage: 1 MG TWICE DAILY PO
     Route: 048
     Dates: start: 20080306, end: 20080320

REACTIONS (6)
  - ANXIETY [None]
  - DEPRESSION [None]
  - DRUG WITHDRAWAL SYNDROME [None]
  - HOMICIDAL IDEATION [None]
  - NIGHTMARE [None]
  - SUICIDAL IDEATION [None]
